FAERS Safety Report 8576830-1 (Version None)
Quarter: 2012Q3

REPORT INFORMATION
  Report Type: 
  Country: None (occurrence: None)
  Receive Date: 20120807
  Receipt Date: 20120731
  Transmission Date: 20120928
  Serious: Yes (Other)
  Sender: FDA-Public Use
  Company Number: US-CELGENEUS-163-21880-12062061

PATIENT
  Sex: Female

DRUGS (4)
  1. REVLIMID [Suspect]
     Indication: MULTIPLE MYELOMA
     Dosage: 15 MILLIGRAM
     Route: 048
     Dates: start: 20090630
  2. ASPIRIN [Concomitant]
     Route: 065
  3. MULTI-VITAMINS [Concomitant]
     Route: 065
  4. CALCIUM PLUS D [Concomitant]
     Route: 065

REACTIONS (2)
  - BONE DISORDER [None]
  - FATIGUE [None]
